FAERS Safety Report 9859049 (Version 2)
Quarter: 2015Q4

REPORT INFORMATION
  Report Type: Report from Study
  Country: US (occurrence: US)
  Receive Date: 20140131
  Receipt Date: 20151230
  Transmission Date: 20160305
  Serious: Yes (Hospitalization, Other)
  Sender: FDA-Public Use
  Company Number: US-ALEXION-A201400260

PATIENT
  Age: 70 Year
  Sex: Female

DRUGS (18)
  1. SOLIRIS [Suspect]
     Active Substance: ECULIZUMAB
     Indication: HAEMOLYTIC URAEMIC SYNDROME
     Dosage: 900 MG, QW
     Route: 042
     Dates: start: 20140110
  2. EPOETIN [Concomitant]
     Active Substance: ERYTHROPOIETIN
     Indication: PRODUCT USED FOR UNKNOWN INDICATION
     Dosage: 2,000 UNITS, WEEKLY
     Route: 058
     Dates: start: 20120607
  3. CLONIDINE. [Concomitant]
     Active Substance: CLONIDINE
     Indication: HYPERTENSION
     Dosage: .1 MG, Q 8 HOURS
     Dates: start: 20120607
  4. LASIX [Concomitant]
     Active Substance: FUROSEMIDE
     Indication: PRODUCT USED FOR UNKNOWN INDICATION
     Dosage: 40-120 MG, PRN, QD
     Dates: start: 20120607
  5. ACETYLCYSTEINE. [Concomitant]
     Active Substance: ACETYLCYSTEINE
     Indication: LUNG DISORDER
     Dosage: 600 MG, TID
     Dates: start: 20120607
  6. PREDNISONE. [Concomitant]
     Active Substance: PREDNISONE
     Indication: STEROID THERAPY
     Dosage: 5 MG, QD
     Dates: start: 20120607
  7. LOSARTAN. [Concomitant]
     Active Substance: LOSARTAN
     Indication: HYPERTENSION
     Dosage: 100 MG, BID
     Dates: start: 20120607
  8. NORVASC [Concomitant]
     Active Substance: AMLODIPINE BESYLATE
     Indication: HYPERTENSION
     Dosage: 10 MG, QD
     Dates: start: 20120607
  9. ERTAPENEM SODIUM [Concomitant]
     Active Substance: ERTAPENEM SODIUM
     Indication: PYELONEPHRITIS
     Dosage: UNK
     Route: 065
     Dates: start: 20140119
  10. ERTAPENEM SODIUM [Concomitant]
     Active Substance: ERTAPENEM SODIUM
     Dosage: UNK
     Route: 065
  11. LEVOFLOXACIN. [Concomitant]
     Active Substance: LEVOFLOXACIN
     Indication: PRODUCT USED FOR UNKNOWN INDICATION
     Dosage: UNK
     Route: 065
     Dates: start: 20140117
  12. REMERON [Concomitant]
     Active Substance: MIRTAZAPINE
     Indication: DEPRESSION
     Dosage: 1/4 TABLET, QD
     Dates: start: 20120607
  13. LEVOTHYROXINE. [Concomitant]
     Active Substance: LEVOTHYROXINE
     Indication: PRODUCT USED FOR UNKNOWN INDICATION
     Dosage: 50 ?G, QD
     Dates: start: 20120607
  14. DAPSONE. [Concomitant]
     Active Substance: DAPSONE
     Indication: PRODUCT USED FOR UNKNOWN INDICATION
     Route: 065
  15. NEPHROCAPS                         /01801401/ [Concomitant]
     Indication: PRODUCT USED FOR UNKNOWN INDICATION
     Dosage: 1 TABLET, QD
     Dates: start: 20120607
  16. PRILOSEC [Concomitant]
     Active Substance: OMEPRAZOLE MAGNESIUM
     Indication: PRODUCT USED FOR UNKNOWN INDICATION
     Dosage: 20 MG, QD
     Dates: start: 20120607
  17. CLOTRIMAZOLE. [Concomitant]
     Active Substance: CLOTRIMAZOLE
     Indication: PRODUCT USED FOR UNKNOWN INDICATION
     Route: 065
  18. VALGANCICLOVIR [Concomitant]
     Active Substance: VALGANCICLOVIR
     Indication: PRODUCT USED FOR UNKNOWN INDICATION
     Route: 065

REACTIONS (13)
  - Renal transplant [Unknown]
  - Renal haematoma [Unknown]
  - Pyelonephritis [Unknown]
  - Abdominal pain [Recovering/Resolving]
  - Leukocytosis [Unknown]
  - Ileus paralytic [Unknown]
  - Chronic kidney disease [Unknown]
  - Retroperitoneal haemorrhage [Unknown]
  - Clostridium difficile infection [Unknown]
  - Abdominal pain upper [Unknown]
  - Condition aggravated [Unknown]
  - Escherichia infection [Recovered/Resolved]
  - Bowel movement irregularity [Unknown]

NARRATIVE: CASE EVENT DATE: 20140116
